FAERS Safety Report 24835634 (Version 1)
Quarter: 2025Q1

REPORT INFORMATION
  Report Type: Spontaneous
  Country: IN (occurrence: IN)
  Receive Date: 20250113
  Receipt Date: 20250113
  Transmission Date: 20250409
  Serious: Yes (Other)
  Sender: ZYDUS PHARM
  Company Number: IN-CADILA HEALTHCARE LIMITED-IN-ZYDUS-117456

PATIENT

DRUGS (17)
  1. ISOSORBIDE MONONITRATE [Interacting]
     Active Substance: ISOSORBIDE MONONITRATE
     Indication: Product used for unknown indication
     Route: 065
  2. ETOFYLLINE\THEOPHYLLINE [Interacting]
     Active Substance: ETOFYLLINE\THEOPHYLLINE
     Indication: Chronic obstructive pulmonary disease
     Route: 065
  3. FLUCONAZOLE [Interacting]
     Active Substance: FLUCONAZOLE
     Indication: Oral candidiasis
     Route: 065
  4. IVABRADINE HYDROCHLORIDE [Interacting]
     Active Substance: IVABRADINE HYDROCHLORIDE
     Indication: Myocardial ischaemia
     Route: 065
  5. IVABRADINE HYDROCHLORIDE [Interacting]
     Active Substance: IVABRADINE HYDROCHLORIDE
     Indication: Chest pain
     Route: 065
  6. BUDESONIDE [Concomitant]
     Active Substance: BUDESONIDE
     Indication: Product used for unknown indication
     Route: 065
  7. CEFOPERAZONE\SULBACTAM [Interacting]
     Active Substance: CEFOPERAZONE\SULBACTAM
     Indication: Pneumonia
     Route: 065
  8. CHOLINE SALICYLATE;LIDOCAINE [Concomitant]
     Indication: Mouth ulceration
     Route: 065
  9. DEXTROSE [Concomitant]
     Active Substance: DEXTROSE MONOHYDRATE
     Indication: Hypoglycaemia
     Route: 065
  10. TORSEMIDE [Concomitant]
     Active Substance: TORSEMIDE
     Indication: Product used for unknown indication
     Route: 065
  11. ASPIRIN\ATORVASTATIN [Concomitant]
     Active Substance: ASPIRIN\ATORVASTATIN
     Indication: Product used for unknown indication
     Route: 065
  12. INSULIN NOS [Concomitant]
     Active Substance: INSULIN NOS
     Indication: Diabetes mellitus
     Route: 065
  13. LIVOGEN [FERROUS FUMARATE;FOLIC ACID] [Concomitant]
     Indication: Anaemia
     Route: 065
  14. MINERAL OIL [Concomitant]
     Active Substance: MINERAL OIL
     Indication: Constipation
     Route: 065
  15. MONTAIR PLUS [Concomitant]
     Indication: Chronic obstructive pulmonary disease
     Route: 065
  16. PANTOPRAZOLE [Concomitant]
     Active Substance: PANTOPRAZOLE
     Indication: Mouth ulceration
     Route: 065
  17. LEVOTHYROXINE [Concomitant]
     Active Substance: LEVOTHYROXINE
     Indication: Product used for unknown indication
     Route: 065

REACTIONS (2)
  - Drug interaction [Unknown]
  - Oedema peripheral [Recovered/Resolved]
